FAERS Safety Report 5484196-9 (Version None)
Quarter: 2007Q4

REPORT INFORMATION
  Report Type: 
  Country: None (occurrence: None)
  Receive Date: 20071009
  Receipt Date: 20071009
  Transmission Date: 20080405
  Serious: No
  Sender: FDA-Public Use
  Company Number: None

PATIENT
  Sex: Female

DRUGS (4)
  1. METFORMIN HYDROCHLORIDE [Suspect]
     Dosage: 1 TABLET TWICE DAILY
  2. NORVASC [Concomitant]
  3. LISINOPRIL [Concomitant]
  4. GLYBURIDE [Concomitant]

REACTIONS (4)
  - DEVICE INTERACTION [None]
  - DYSGEUSIA [None]
  - GLOSSODYNIA [None]
  - LIP EXFOLIATION [None]
